FAERS Safety Report 7832890-4 (Version None)
Quarter: 2011Q4

REPORT INFORMATION
  Report Type: 
  Country: None (occurrence: None)
  Receive Date: 20111019
  Receipt Date: 20111006
  Transmission Date: 20120403
  Serious: Yes (Hospitalization)
  Sender: FDA-Public Use
  Company Number: 1000024711

PATIENT
  Age: 88 Year
  Sex: Male

DRUGS (4)
  1. ESCITALOPRAM [Suspect]
     Indication: DEPRESSION
     Dosage: ORAL
     Route: 048
     Dates: end: 20091112
  2. MOVICOL (POLYETHYLENE GLYCOL) (TABLETS) (POLYETHYLENE GLYCOL) [Concomitant]
  3. CO-APROVEL (IRBESARTAN, HYDROCHLOROTHIAZIDE) (TABLETS) (IRBESARTAN, HY [Concomitant]
  4. REDOXON (ASCORBIC ACID) (TABLETS) (ASCORBIC ACID) [Concomitant]

REACTIONS (6)
  - PRURITUS [None]
  - RASH PAPULAR [None]
  - PURPURA [None]
  - ASTHENIA [None]
  - WEIGHT DECREASED [None]
  - FATIGUE [None]
